FAERS Safety Report 18383599 (Version 1)
Quarter: 2020Q4

REPORT INFORMATION
  Report Type: Spontaneous
  Country: FR (occurrence: FR)
  Receive Date: 20201014
  Receipt Date: 20201014
  Transmission Date: 20210114
  Serious: Yes (Life-Threatening)
  Sender: FDA-Public Use
  Company Number: FR-GLAXOSMITHKLINE-FR2020203554

PATIENT
  Age: 66 Year
  Sex: Male
  Weight: 96 kg

DRUGS (2)
  1. WELLVONE [Suspect]
     Active Substance: ATOVAQUONE
     Indication: PNEUMOCYSTIS JIROVECII PNEUMONIA
     Dosage: UNK
     Route: 048
     Dates: start: 20200629, end: 20200706
  2. AXEPIM [Suspect]
     Active Substance: CEFEPIME HYDROCHLORIDE
     Indication: PNEUMOCOCCAL INFECTION
     Dosage: 1 DF, QD
     Route: 041
     Dates: start: 20200629, end: 20200706

REACTIONS (2)
  - Confusional state [Recovered/Resolved]
  - Amnesia [Recovered/Resolved]

NARRATIVE: CASE EVENT DATE: 20200710
